FAERS Safety Report 8301388 (Version 2)
Quarter: 2012Q4

REPORT INFORMATION
  Report Type: 
  Country: US (occurrence: US)
  Receive Date: 20111219
  Receipt Date: 20121026
  Transmission Date: 20130627
  Serious: No
  Sender: FDA-Public Use
  Company Number: US-ASTRAZENECA-2011SE37309

PATIENT
  Age: 86 Year
  Sex: Female
  Weight: 59 kg

DRUGS (9)
  1. CRESTOR [Suspect]
     Indication: HYPERCHOLESTEROLAEMIA
     Route: 048
     Dates: start: 20110614
  2. HTN MEDICATION [Concomitant]
     Indication: HYPERTENSION
  3. HRT [Concomitant]
     Indication: HORMONE REPLACEMENT THERAPY
  4. VITAMINS [Concomitant]
  5. DIOVAN HCT [Concomitant]
     Indication: HYPERTENSION
  6. BABY ASPIRIN [Concomitant]
  7. NORVASC [Concomitant]
  8. METOPROLOL [Concomitant]
  9. AMLODIPINE [Concomitant]

REACTIONS (8)
  - Somnolence [Not Recovered/Not Resolved]
  - Back pain [Unknown]
  - Depression [Unknown]
  - Myalgia [Unknown]
  - Fatigue [Not Recovered/Not Resolved]
  - Headache [Unknown]
  - Pruritus [Unknown]
  - Pain in extremity [Unknown]
